FAERS Safety Report 5055773-4 (Version None)
Quarter: 2006Q3

REPORT INFORMATION
  Report Type: 
  Country: None (occurrence: None)
  Receive Date: 20060714
  Receipt Date: 20060707
  Transmission Date: 20061208
  Serious: Yes (Life-Threatening)
  Sender: FDA-Public Use
  Company Number: 14369

PATIENT
  Age: 53 Year
  Sex: Female
  Weight: 69.14 kg

DRUGS (4)
  1. CYTARABINE [Suspect]
     Indication: ACUTE MYELOID LEUKAEMIA
     Dates: start: 20060104, end: 20060108
  2. ETOPOSIDE [Suspect]
     Indication: ACUTE MYELOID LEUKAEMIA
     Dates: start: 20060104, end: 20060108
  3. MITOXANTRONE [Suspect]
     Indication: ACUTE MYELOID LEUKAEMIA
     Dates: start: 20060104, end: 20060108
  4. CEP-701 [Suspect]
     Indication: ACUTE MYELOID LEUKAEMIA

REACTIONS (3)
  - BLOOD PRESSURE DECREASED [None]
  - ESCHERICHIA BACTERAEMIA [None]
  - HYPOTENSION [None]
